FAERS Safety Report 4719474-1 (Version None)
Quarter: 2005Q3

REPORT INFORMATION
  Report Type: 
  Country: None (occurrence: None)
  Receive Date: 20050719
  Receipt Date: 20050708
  Transmission Date: 20060218
  Serious: Yes (Hospitalization, Other)
  Sender: FDA-Public Use
  Company Number: USA-2003-0005109

PATIENT
  Age: 39 Year
  Sex: Male
  Weight: 74.4 kg

DRUGS (12)
  1. OXYCONTIN [Suspect]
     Indication: PAIN
     Dosage: 20 MG, Q12H, ORAL
     Route: 048
     Dates: start: 20000323
  2. WELLBUTRIN SR [Concomitant]
  3. VIOXX [Concomitant]
  4. TRAZODONE HCL [Concomitant]
  5. VALIUM [Concomitant]
  6. SOMA [Concomitant]
  7. NEXIUM [Concomitant]
  8. ZIAC [Concomitant]
  9. PLAVIX [Concomitant]
  10. ZOCOR [Concomitant]
  11. PAXIL [Concomitant]
  12. CELEBREX [Concomitant]

REACTIONS (33)
  - ANAL FISSURE [None]
  - ANAL POLYP [None]
  - ANXIETY [None]
  - CHEST WALL PAIN [None]
  - DEPRESSION [None]
  - DIARRHOEA [None]
  - DRUG DEPENDENCE [None]
  - DRUG WITHDRAWAL SYNDROME [None]
  - DRY SKIN [None]
  - DYSPEPSIA [None]
  - ERYTHEMA [None]
  - HAEMORRHOIDS [None]
  - HEADACHE [None]
  - HYPERHIDROSIS [None]
  - HYPOAESTHESIA [None]
  - INADEQUATE ANALGESIA [None]
  - INAPPROPRIATE SCHEDULE OF DRUG ADMINISTRATION [None]
  - INSOMNIA [None]
  - IRRITABILITY [None]
  - LIMB INJURY [None]
  - MALAISE [None]
  - MUSCLE SPASMS [None]
  - NAUSEA [None]
  - NERVOUSNESS [None]
  - OEDEMA PERIPHERAL [None]
  - PAIN IN EXTREMITY [None]
  - PARAESTHESIA [None]
  - PROCTALGIA [None]
  - PULSE ABSENT [None]
  - RECTAL HAEMORRHAGE [None]
  - TREMOR [None]
  - VOMITING [None]
  - WEIGHT DECREASED [None]
